FAERS Safety Report 7561064-X (Version None)
Quarter: 2011Q2

REPORT INFORMATION
  Report Type: 
  Country: None (occurrence: None)
  Receive Date: 20110621
  Receipt Date: 20110613
  Transmission Date: 20111010
  Serious: Yes (Death)
  Sender: FDA-Public Use
  Company Number: US-CELGENEUS-163-21880-11062000

PATIENT
  Sex: Female

DRUGS (14)
  1. REVLIMID [Suspect]
     Dosage: 5 MILLIGRAM
     Route: 048
     Dates: start: 20100101
  2. VITAMIN K1 [Concomitant]
     Dosage: 1MG/0.5
     Route: 065
  3. FOSAMAX [Concomitant]
     Dosage: 70 MILLIGRAM
     Route: 048
  4. HYDROCODONE/SOL APAP [Concomitant]
     Route: 065
  5. LORATADINE [Concomitant]
     Route: 048
  6. CARTIA XT [Concomitant]
     Dosage: 120
     Route: 048
  7. COUMADIN [Concomitant]
     Dosage: 1 MILLIGRAM
     Route: 048
  8. RENAL [Concomitant]
     Route: 048
  9. CLARITIN [Concomitant]
     Dosage: 10 MILLIGRAM
     Route: 048
  10. REVLIMID [Suspect]
     Indication: MULTIPLE MYELOMA
     Dosage: 15 MILLIGRAM
     Route: 048
     Dates: start: 20091201
  11. MEGACE [Concomitant]
     Dosage: 40 MILLIGRAM/MILLILITERS
     Route: 048
  12. PROCHLORPERAZINE TAB [Concomitant]
     Dosage: 10 MILLIGRAM
     Route: 048
  13. MARINOL [Concomitant]
     Dosage: 2.5 MILLIGRAM
     Route: 048
  14. ZOFRAN [Concomitant]
     Dosage: 24 MILLIGRAM
     Route: 048

REACTIONS (1)
  - RENAL FAILURE [None]
